FAERS Safety Report 8908397 (Version 1)
Quarter: 2012Q4

REPORT INFORMATION
  Report Type: Report from Study
  Country: AU (occurrence: AU)
  Receive Date: 20121114
  Receipt Date: 20121114
  Transmission Date: 20130627
  Serious: Yes (Other)
  Sender: FDA-Public Use
  Company Number: PHHY2012AU091384

PATIENT
  Age: 46 Year
  Sex: Male
  Weight: 88 kg

DRUGS (8)
  1. CLOZARIL [Suspect]
     Indication: SCHIZOPHRENIA
     Dosage: 200 mg, UNK
     Route: 048
     Dates: start: 20120817
  2. EZETIMIBE [Concomitant]
     Indication: HYPERCHOLESTEROLAEMIA
     Dosage: 10 mg, QD
  3. METFORMIN [Concomitant]
     Indication: TYPE 2 DIABETES MELLITUS
     Dosage: 1000 mg, BID
  4. ASPIRIN [Concomitant]
     Indication: MYOCARDIAL ISCHAEMIA
     Dosage: 100 mg, UNK
  5. SITAGLIPTIN [Concomitant]
     Indication: TYPE 2 DIABETES MELLITUS
     Dosage: 100 mg, QD
  6. GLICLAZIDE [Concomitant]
     Indication: TYPE 2 DIABETES MELLITUS
     Dosage: 90 mg, UNK
  7. DULOXETINE [Concomitant]
     Indication: DEPRESSION
     Dosage: 120 mg, UNK
  8. OLANZAPINE [Concomitant]
     Indication: SCHIZOPHRENIA
     Dosage: 20 mg, UNK

REACTIONS (1)
  - Troponin increased [Recovered/Resolved]
